FAERS Safety Report 4499198-9 (Version None)
Quarter: 2004Q4

REPORT INFORMATION
  Report Type: 
  Country: None (occurrence: None)
  Receive Date: 20041111
  Receipt Date: 20041013
  Transmission Date: 20050328
  Serious: Yes (Life-Threatening, Hospitalization, Disabling, Other)
  Sender: FDA-Public Use
  Company Number: US-GLAXOSMITHKLINE-A0529795A

PATIENT
  Age: 51 Year
  Sex: Female
  Weight: 129.1 kg

DRUGS (4)
  1. PAXIL CR [Suspect]
     Indication: DRUG USE FOR UNKNOWN INDICATION
     Route: 048
  2. LASIX [Concomitant]
     Indication: ILL-DEFINED DISORDER
  3. BENTYL [Concomitant]
     Indication: ILL-DEFINED DISORDER
  4. ALBUTEROL [Concomitant]
     Indication: ILL-DEFINED DISORDER

REACTIONS (2)
  - ASCITES [None]
  - HEPATIC CIRRHOSIS [None]
